FAERS Safety Report 6896579-0 (Version None)
Quarter: 2010Q3

REPORT INFORMATION
  Report Type: 
  Country: None (occurrence: None)
  Receive Date: 20100729
  Receipt Date: 20100720
  Transmission Date: 20110219
  Serious: Yes (Hospitalization, Other)
  Sender: FDA-Public Use
  Company Number: 2010US002631

PATIENT
  Age: 30 Year
  Sex: Male

DRUGS (1)
  1. AMBISOME [Suspect]
     Indication: MENINGITIS CRYPTOCOCCAL
     Dosage: 400 MG, UID/QD, IV DRIP
     Route: 041
     Dates: start: 20100215

REACTIONS (4)
  - BLOOD CHOLESTEROL INCREASED [None]
  - DYSLIPIDAEMIA [None]
  - HYPOKALAEMIA [None]
  - RENAL DISORDER [None]
